FAERS Safety Report 13310180 (Version 1)
Quarter: 2017Q1

REPORT INFORMATION
  Report Type: Spontaneous
  Country: US (occurrence: US)
  Receive Date: 20170308
  Receipt Date: 20170308
  Transmission Date: 20170428
  Serious: No
  Sender: FDA-Public Use
  Company Number: None

PATIENT
  Age: 19 Year
  Sex: Female

DRUGS (3)
  1. NEORAL [Suspect]
     Active Substance: CYCLOSPORINE
     Indication: CHRONIC KIDNEY DISEASE
  2. NEORAL [Suspect]
     Active Substance: CYCLOSPORINE
     Indication: RENAL TRANSPLANT
  3. NEORAL [Suspect]
     Active Substance: CYCLOSPORINE
     Indication: HYPERTENSION

REACTIONS (5)
  - Hot flush [None]
  - Asthenia [None]
  - Swelling face [None]
  - Arthralgia [None]
  - Feeling cold [None]

NARRATIVE: CASE EVENT DATE: 20170308
